FAERS Safety Report 25669958 (Version 1)
Quarter: 2025Q3

REPORT INFORMATION
  Report Type: Spontaneous
  Country: US (occurrence: US)
  Receive Date: 20250812
  Receipt Date: 20250812
  Transmission Date: 20251020
  Serious: No
  Sender: GALPHARM INTERNATIONAL
  Company Number: US-PERRIGO-25US000026

PATIENT
  Age: 70 Year
  Sex: Female
  Weight: 108.84 kg

DRUGS (2)
  1. NICOTINE POLACRILEX [Suspect]
     Active Substance: NICOTINE
     Indication: Smoking cessation therapy
     Route: 002
     Dates: start: 20241231
  2. NICOTINE POLACRILEX [Suspect]
     Active Substance: NICOTINE
     Route: 048
     Dates: start: 20250102, end: 20250102

REACTIONS (3)
  - Euphoric mood [Recovering/Resolving]
  - Dizziness [Recovering/Resolving]
  - Accidental exposure to product [Unknown]

NARRATIVE: CASE EVENT DATE: 20241231
